FAERS Safety Report 19270033 (Version 1)
Quarter: 2021Q2

REPORT INFORMATION
  Report Type: Spontaneous
  Country: US (occurrence: US)
  Receive Date: 20210518
  Receipt Date: 20210518
  Transmission Date: 20210717
  Serious: No
  Sender: FDA-Public Use
  Company Number: None

PATIENT
  Sex: Female

DRUGS (22)
  1. PREDNISOLONE ACETATE. [Concomitant]
     Active Substance: PREDNISOLONE ACETATE
  2. LORATADINE. [Concomitant]
     Active Substance: LORATADINE
  3. GLIMEPIRIDE. [Concomitant]
     Active Substance: GLIMEPIRIDE
  4. ATORVASTATIN CALCIUM. [Concomitant]
     Active Substance: ATORVASTATIN CALCIUM
  5. FUROSEMIDE. [Concomitant]
     Active Substance: FUROSEMIDE
  6. DICLOFENAC SODIUM. [Concomitant]
     Active Substance: DICLOFENAC SODIUM
  7. PIOGLITAZONE HCL [Concomitant]
     Active Substance: PIOGLITAZONE
  8. IRON 100 PLUS [Concomitant]
     Active Substance: ASCORBIC ACID\CYANOCOBALAMIN\FOLIC ACID\IRON
  9. GABAPENTIN. [Concomitant]
     Active Substance: GABAPENTIN
  10. FAMOTIDINE. [Concomitant]
     Active Substance: FAMOTIDINE
  11. VITAMIN D [Concomitant]
     Active Substance: VITAMIN D NOS
  12. LEVOTHYROXINE. [Suspect]
     Active Substance: LEVOTHYROXINE
  13. POTASSIUM CHLORIDE ER [Concomitant]
     Active Substance: POTASSIUM CHLORIDE
  14. TADALAFIL. [Concomitant]
     Active Substance: TADALAFIL
  15. LETAIRIS [Concomitant]
     Active Substance: AMBRISENTAN
  16. VIBERZI [Concomitant]
     Active Substance: ELUXADOLINE
  17. LEVOTHYROXINE SODIUM. [Concomitant]
     Active Substance: LEVOTHYROXINE SODIUM
  18. AMBRISENTAN 10MG TAB [Suspect]
     Active Substance: AMBRISENTAN
     Indication: PULMONARY ARTERIAL HYPERTENSION
     Route: 048
  19. RANITIDINE HCL [Concomitant]
     Active Substance: RANITIDINE HYDROCHLORIDE
  20. AMITRIPTYLINE HCL [Concomitant]
     Active Substance: AMITRIPTYLINE
  21. METFORMIN HCL [Concomitant]
     Active Substance: METFORMIN HYDROCHLORIDE
  22. CLARITIN [Concomitant]
     Active Substance: LORATADINE

REACTIONS (2)
  - Vomiting [None]
  - Diarrhoea [None]
